FAERS Safety Report 4648388-0 (Version None)
Quarter: 2005Q2

REPORT INFORMATION
  Report Type: 
  Country: None (occurrence: None)
  Receive Date: 20050427
  Receipt Date: 20050408
  Transmission Date: 20051028
  Serious: Yes (Hospitalization)
  Sender: FDA-Public Use
  Company Number: EWC050443494

PATIENT
  Age: 85 Year
  Sex: Female

DRUGS (3)
  1. YENTREVE (DULOXETINE HYDROCHLORIDE) [Suspect]
     Indication: URINARY INCONTINENCE
     Dosage: 40 MG DAY
     Dates: start: 20050114, end: 20050128
  2. LEVAXIN (LEVOTHYROXINE SODIUM) [Concomitant]
  3. ASPIRIN [Concomitant]

REACTIONS (5)
  - DIZZINESS [None]
  - HYPOKALAEMIA [None]
  - HYPONATRAEMIA [None]
  - NAUSEA [None]
  - VOMITING [None]
